FAERS Safety Report 8684055 (Version 2)
Quarter: 2012Q4

REPORT INFORMATION
  Report Type: 
  Country: US (occurrence: US)
  Receive Date: 20120726
  Receipt Date: 20120920
  Transmission Date: 20130627
  Serious: Yes (Hospitalization, Other)
  Sender: FDA-Public Use
  Company Number: US-CELGENEUS-163-21880-12072162

PATIENT
  Age: 61 None
  Sex: Female

DRUGS (6)
  1. REVLIMID [Suspect]
     Indication: MULTIPLE MYELOMA
     Dosage: 25 Milligram
     Route: 048
     Dates: start: 201009
  2. REVLIMID [Suspect]
     Dosage: 20 Milligram
     Route: 048
     Dates: start: 201010
  3. REVLIMID [Suspect]
     Dosage: 15-10mg
     Route: 048
     Dates: start: 201010
  4. REVLIMID [Suspect]
     Dosage: 10 Milligram
     Route: 048
     Dates: start: 20110826
  5. REVLIMID [Suspect]
     Dosage: 5 Milligram
     Route: 048
     Dates: start: 20110827
  6. REVLIMID [Suspect]
     Dosage: 5 Milligram
     Route: 048
     Dates: start: 2012

REACTIONS (5)
  - Asthma [Unknown]
  - Influenza [Unknown]
  - Nasopharyngitis [Unknown]
  - Cough [Unknown]
  - Pruritus [Unknown]
